FAERS Safety Report 21054789 (Version 1)
Quarter: 2022Q3

REPORT INFORMATION
  Report Type: Spontaneous
  Country: US (occurrence: US)
  Receive Date: 20220707
  Receipt Date: 20220707
  Transmission Date: 20221027
  Serious: No
  Sender: FDA-Public Use
  Company Number: US-PFIZER INC-PV202200016450

PATIENT
  Age: 72 Year

DRUGS (2)
  1. PREMPRO [Suspect]
     Active Substance: ESTROGENS, CONJUGATED\MEDROXYPROGESTERONE ACETATE
     Indication: Multiple sclerosis
     Dosage: UNK
  2. ARMODAFINIL [Suspect]
     Active Substance: ARMODAFINIL
     Indication: Multiple sclerosis
     Dosage: UNK

REACTIONS (5)
  - Night sweats [Unknown]
  - Insomnia [Unknown]
  - Anxiety [Unknown]
  - Loss of personal independence in daily activities [Unknown]
  - Off label use [Unknown]
